FAERS Safety Report 5299317-0 (Version None)
Quarter: 2007Q2

REPORT INFORMATION
  Report Type: 
  Country: None (occurrence: None)
  Receive Date: 20070417
  Receipt Date: 20070402
  Transmission Date: 20071010
  Serious: Yes (Death)
  Sender: FDA-Public Use
  Company Number: FR-ELI_LILLY_AND_COMPANY-FR200702002386

PATIENT
  Age: 43 Year
  Sex: Female
  Weight: 70 kg

DRUGS (4)
  1. ZYPREXA [Suspect]
     Indication: SCHIZOPHRENIA
     Dosage: 5 MG, 3/D
     Route: 048
     Dates: start: 20061001, end: 20070111
  2. PROZAC [Suspect]
     Indication: DEPRESSION
     Dosage: 20 MG, DAILY (1/D)
     Route: 048
     Dates: start: 20050101, end: 20070111
  3. IMOVANE [Concomitant]
     Indication: SCHIZOAFFECTIVE DISORDER
     Dosage: 7.5 MG, DAILY (1/D)
     Route: 048
     Dates: start: 20050101, end: 20070111
  4. LYSANXIA [Concomitant]
     Indication: SCHIZOAFFECTIVE DISORDER
     Dosage: 10 MG, 2/D
     Route: 048
     Dates: start: 20050101, end: 20070111

REACTIONS (1)
  - MULTIPLE DRUG OVERDOSE INTENTIONAL [None]
